FAERS Safety Report 5967697-6 (Version None)
Quarter: 2008Q4

REPORT INFORMATION
  Report Type: 
  Country: None (occurrence: None)
  Receive Date: 20081126
  Receipt Date: 20081114
  Transmission Date: 20090506
  Serious: Yes (Other)
  Sender: FDA-Public Use
  Company Number: GB-RANBAXY-2008RR-19374

PATIENT
  Sex: Male
  Weight: 108 kg

DRUGS (12)
  1. SIMVASTATIN [Suspect]
     Indication: HYPERCHOLESTEROLAEMIA
     Dosage: 20 MG, QD
     Dates: start: 20060530
  2. CANDESARTAN [Suspect]
     Indication: HYPERTENSION
     Dosage: 16 MG, QD
     Dates: start: 20080929
  3. DIPYRIDAMOLE [Suspect]
     Indication: THROMBOSIS PROPHYLAXIS
     Dosage: 200 MG, BID
     Dates: start: 20060626
  4. FELODIPINE [Suspect]
     Indication: HYPERTENSION
     Dosage: 5 MG, QD
     Dates: start: 20051222
  5. IPRATROPIUM BROMIDE [Suspect]
     Indication: ASTHMA
     Dosage: 20 UG, BID
     Route: 055
     Dates: start: 20050124
  6. SERETIDE [Suspect]
     Indication: ASTHMA
     Dosage: 1 DF, BID
     Route: 055
     Dates: start: 20020901
  7. VENTOLIN [Suspect]
     Indication: ASTHMA
     Dosage: UNK
     Route: 055
  8. ASPIRIN [Concomitant]
     Indication: DRUG USE FOR UNKNOWN INDICATION
     Dosage: 75 MG, QD
     Route: 065
     Dates: start: 20060628
  9. BECLOMETHASONE DIPROPIONATE [Concomitant]
     Indication: DRUG USE FOR UNKNOWN INDICATION
     Dosage: 2 DF, BID
     Route: 045
     Dates: start: 20020423
  10. LORATADINE [Concomitant]
     Indication: DRUG USE FOR UNKNOWN INDICATION
     Dosage: 10 MG, QD
     Route: 065
     Dates: start: 20020426
  11. PARACETAMOL [Concomitant]
     Indication: DRUG USE FOR UNKNOWN INDICATION
     Dosage: UNK
     Route: 065
     Dates: start: 19991029
  12. TIOTROPIUM BROMIDE [Concomitant]
     Indication: DRUG USE FOR UNKNOWN INDICATION
     Dosage: 18 UG, QD
     Route: 055
     Dates: start: 20061013

REACTIONS (2)
  - ASTHMA [None]
  - FEELING ABNORMAL [None]
